FAERS Safety Report 23588146 (Version 3)
Quarter: 2024Q2

REPORT INFORMATION
  Report Type: Spontaneous
  Country: IT (occurrence: IT)
  Receive Date: 20240302
  Receipt Date: 20240401
  Transmission Date: 20240716
  Serious: Yes (Hospitalization)
  Sender: FDA-Public Use
  Company Number: IT-ROCHE-2194937

PATIENT
  Age: 55 Year
  Sex: Female
  Weight: 70 kg

DRUGS (48)
  1. XGEVA [Suspect]
     Active Substance: DENOSUMAB
     Indication: Product used for unknown indication
     Dosage: 120 MILLIGRAM, QMO (DATE OF LAST ADMINISTRATION 25/JAN/2022)
     Route: 065
     Dates: start: 20190315
  2. HERCEPTIN [Suspect]
     Active Substance: TRASTUZUMAB
     Indication: HER2 positive breast cancer
     Dosage: 8 MILLIGRAM PER KILOGRAM, Q3WK
     Route: 042
     Dates: start: 20171118, end: 20171118
  3. HERCEPTIN [Suspect]
     Active Substance: TRASTUZUMAB
     Dosage: 6 MILLIGRAM PER KILOGRAM, Q3WK
     Route: 042
     Dates: start: 20171209, end: 20210521
  4. HERCEPTIN [Suspect]
     Active Substance: TRASTUZUMAB
     Dosage: 560 MILLIGRAM, QWK
     Route: 042
     Dates: start: 20220527, end: 20220527
  5. HERCEPTIN [Suspect]
     Active Substance: TRASTUZUMAB
     Dosage: 8 MILLIGRAM PER KILOGRAM, Q3WK
     Route: 042
     Dates: start: 20220527, end: 20220729
  6. HERCEPTIN [Suspect]
     Active Substance: TRASTUZUMAB
     Dosage: 420 MILLIGRAM, Q3WK
     Route: 042
     Dates: start: 20220617, end: 20220729
  7. XELODA [Suspect]
     Active Substance: CAPECITABINE
     Indication: HER2 positive breast cancer
     Dosage: 500 MILLIGRAM (0.33 DAY)
     Route: 048
     Dates: start: 20220805, end: 20220824
  8. XELODA [Suspect]
     Active Substance: CAPECITABINE
     Dosage: 500 MILLIGRAM (0.5 DAY)
     Route: 048
     Dates: start: 20221205, end: 20230112
  9. TALAZOPARIB [Suspect]
     Active Substance: TALAZOPARIB
     Indication: HER2 positive breast cancer
     Dosage: 1 MILLIGRAM, QD (LAST DOSE RECEIVED ON 23-APR-2021)
     Route: 048
     Dates: start: 20201106
  10. PERJETA [Suspect]
     Active Substance: PERTUZUMAB
     Indication: HER2 positive breast cancer
     Dosage: 420 MILLIGRAM, Q3WK
     Route: 042
     Dates: start: 20171209, end: 20200918
  11. PERJETA [Suspect]
     Active Substance: PERTUZUMAB
     Dosage: 840 MILLIGRAM, Q3WK
     Route: 042
     Dates: start: 20171118, end: 20171118
  12. CYTOXAN [Suspect]
     Active Substance: CYCLOPHOSPHAMIDE
     Indication: HER2 positive breast cancer
     Dosage: 600 MILLIGRAM, Q3WK
     Route: 042
     Dates: start: 20220315, end: 20220520
  13. CYTOXAN [Suspect]
     Active Substance: CYCLOPHOSPHAMIDE
     Dosage: 1000 MILLIGRAM, Q3WK
     Route: 042
     Dates: start: 20220315, end: 20220520
  14. TAXOTERE [Suspect]
     Active Substance: DOCETAXEL
     Indication: HER2 positive breast cancer
     Dosage: 130 MILLIGRAM, Q3WK
     Route: 042
     Dates: start: 20171118, end: 20180210
  15. TAXOTERE [Suspect]
     Active Substance: DOCETAXEL
     Dosage: 100 MILLIGRAM, Q3WK (MOST RECENT DOSE WAS RECIVED ON 14/APR/2018)
     Route: 042
     Dates: start: 20180303
  16. AROMASIN [Suspect]
     Active Substance: EXEMESTANE
     Indication: HER2 positive breast cancer
     Dosage: 25 MILLIGRAM, QD
     Route: 048
     Dates: start: 20180713, end: 20201009
  17. PARAPLATIN [Suspect]
     Active Substance: CARBOPLATIN
     Indication: HER2 positive breast cancer
     Dosage: UNK 4AUC, Q3WK
     Route: 042
     Dates: start: 20220527, end: 20220729
  18. PARAPLATIN [Suspect]
     Active Substance: CARBOPLATIN
     Dosage: UNK (6AUC ), Q3WK
     Route: 042
     Dates: start: 20220204, end: 20220225
  19. RIBOCICLIB [Suspect]
     Active Substance: RIBOCICLIB
     Indication: HER2 positive breast cancer
     Dosage: 200 MILLIGRAM
     Route: 048
     Dates: start: 20210618, end: 20220114
  20. FASLODEX [Suspect]
     Active Substance: FULVESTRANT
     Indication: HER2 positive breast cancer
     Dosage: 500 MILLIGRAM, Q3WK
     Route: 030
     Dates: start: 20210521, end: 20211231
  21. PEMBROLIZUMAB [Suspect]
     Active Substance: PEMBROLIZUMAB
     Indication: HER2 positive breast cancer
     Dosage: 200 MILLIGRAM, Q3WK
     Route: 042
     Dates: start: 20220204, end: 20220225
  22. DOXIL [Suspect]
     Active Substance: DOXORUBICIN HYDROCHLORIDE
     Indication: HER2 positive breast cancer
     Dosage: 60 MILLIGRAM, Q3WK
     Route: 042
     Dates: start: 20220315, end: 20220520
  23. DOXIL [Suspect]
     Active Substance: DOXORUBICIN HYDROCHLORIDE
     Dosage: 100 MILLIGRAM, Q3WK
     Route: 042
     Dates: start: 20220315, end: 20220520
  24. GEMZAR [Suspect]
     Active Substance: GEMCITABINE HYDROCHLORIDE
     Indication: HER2 positive breast cancer
     Dosage: 1400 MILLIGRAM, QWK
     Route: 042
     Dates: start: 20220527, end: 20220729
  25. GEMZAR [Suspect]
     Active Substance: GEMCITABINE HYDROCHLORIDE
     Dosage: 800 MILLIGRAM, QWK
     Route: 042
     Dates: start: 20220527, end: 20220729
  26. NOLVADEX [Suspect]
     Active Substance: TAMOXIFEN CITRATE
     Indication: HER2 positive breast cancer
     Dosage: 20 MILLIGRAM, QD, MOST RECENT DOSE RECEIVED ON 12/JUL/2018
     Route: 048
     Dates: start: 20180622
  27. ONDANSETRON [Concomitant]
     Active Substance: ONDANSETRON
     Dosage: 8 MILLIGRAM
     Dates: start: 20210514, end: 20220729
  28. ALPRAZOLAM [Concomitant]
     Active Substance: ALPRAZOLAM
     Dosage: UNK UNK, QD (DATE OF LAST ADMINISTRATION 29/NOV/2021)
     Dates: start: 20180803
  29. DEXAMETHASONE [Concomitant]
     Active Substance: DEXAMETHASONE
     Dates: start: 20171118, end: 20180414
  30. LORAZEPAM [Concomitant]
     Active Substance: LORAZEPAM
     Dosage: UNK
  31. LEVOSULPIRIDE [Concomitant]
     Active Substance: LEVOSULPIRIDE
     Dosage: 50 MILLIGRAM
     Dates: start: 20171118, end: 20180414
  32. LEVOSULPIRIDE [Concomitant]
     Active Substance: LEVOSULPIRIDE
     Dosage: 15 GTT DROPS
     Dates: start: 20190329, end: 20210706
  33. Decapeptyl [Concomitant]
     Dosage: 3.75 MILLIGRAM, QMO (DATE OF LAST ADMINISTRATION 02/NOV/2018)
     Dates: start: 20180713
  34. CHLORPHENIRAMINE MALEATE [Concomitant]
     Active Substance: CHLORPHENIRAMINE MALEATE
     Dosage: 10 MILLIGRAM
     Dates: start: 20171118, end: 20210515
  35. DEXAMETHASONE SODIUM PHOSPHATE [Concomitant]
     Active Substance: DEXAMETHASONE PHOSPHATE\DEXAMETHASONE SODIUM PHOSPHATE
     Dosage: 4 MILLIGRAM (0.5 WEEK)
     Dates: start: 20220922
  36. Ecoval [Concomitant]
     Dosage: UNK (0.5 DAY) (DATE OF LAST ADMINISTRATION 31/DEC/2021)
     Dates: start: 20200424
  37. PREDNISONE [Concomitant]
     Active Substance: PREDNISONE
     Dosage: 25 MILLIGRAM
     Dates: start: 20171117, end: 20171229
  38. PREDNISONE [Concomitant]
     Active Substance: PREDNISONE
     Dosage: 25 MILLIGRAM
     Dates: start: 20171117, end: 20180503
  39. PREDNISONE [Concomitant]
     Active Substance: PREDNISONE
     Dosage: 25 MILLIGRAM
     Dates: start: 20171230, end: 20180503
  40. LANSOPRAZOLE [Concomitant]
     Active Substance: LANSOPRAZOLE
     Dosage: 30 MILLIGRAM, QD
     Dates: start: 20171208, end: 20180413
  41. LANSOPRAZOLE [Concomitant]
     Active Substance: LANSOPRAZOLE
     Dosage: 30 MILLIGRAM, QD
     Dates: start: 20180525, end: 20180622
  42. LANSOPRAZOLE [Concomitant]
     Active Substance: LANSOPRAZOLE
     Dosage: 15 MILLIGRAM, QD
     Dates: start: 20171117, end: 20171207
  43. LANSOPRAZOLE [Concomitant]
     Active Substance: LANSOPRAZOLE
     Dosage: 30 MILLIGRAM, QD
     Dates: start: 20180504, end: 20180622
  44. LANSOPRAZOLE [Concomitant]
     Active Substance: LANSOPRAZOLE
     Dosage: UNK
     Dates: start: 20171118, end: 20180414
  45. CETIRIZINE HYDROCHLORIDE [Concomitant]
     Active Substance: CETIRIZINE HYDROCHLORIDE
     Dosage: 10 MILLIGRAM, QD (DATE OF LAST ADMINISTRATION 05/AUG/2022)
     Dates: start: 20190531
  46. LOPERAMIDE [Concomitant]
     Active Substance: LOPERAMIDE
     Indication: Diarrhoea
     Dosage: 2 MILLIGRAM
     Dates: start: 20171119, end: 20180302
  47. VEA LIPOGEL [Concomitant]
     Dosage: UNK UNK, QD (DATE OF LAST ADMINISTRATION 31/DEC/2021)
     Dates: start: 20190215
  48. HALOPERIDOL [Concomitant]
     Active Substance: HALOPERIDOL
     Dosage: 15 GTT DROPS (0.5 DAY)
     Dates: start: 20221215

REACTIONS (3)
  - Pneumonitis [Recovered/Resolved]
  - Pneumonia [Recovered/Resolved]
  - Diarrhoea [Recovered/Resolved]

NARRATIVE: CASE EVENT DATE: 20220819
